FAERS Safety Report 16319907 (Version 1)
Quarter: 2019Q2

REPORT INFORMATION
  Report Type: Spontaneous
  Country: US (occurrence: US)
  Receive Date: 20190410
  Receipt Date: 20190410
  Transmission Date: 20190711
  Serious: Yes (Hospitalization)
  Sender: FDA-Public Use
  Company Number: None

PATIENT
  Sex: Female

DRUGS (5)
  1. GABAPENTIN. [Concomitant]
     Active Substance: GABAPENTIN
  2. AMLODIPINE [Concomitant]
     Active Substance: AMLODIPINE BESYLATE
  3. CHLORTHALID [Concomitant]
     Active Substance: CHLORTHALIDONE
  4. FUOSEMIDE [Suspect]
     Active Substance: FUROSEMIDE
  5. SILDENAFIL 20MG [Suspect]
     Active Substance: SILDENAFIL
     Indication: ACUTE RESPIRATORY FAILURE
     Route: 048
     Dates: start: 20140507

REACTIONS (1)
  - Large intestinal haemorrhage [None]
